FAERS Safety Report 15856212 (Version 2)
Quarter: 2019Q1

REPORT INFORMATION
  Report Type: Spontaneous
  Country: US (occurrence: US)
  Receive Date: 20190123
  Receipt Date: 20190206
  Transmission Date: 20190417
  Serious: Yes (Other)
  Sender: FDA-Public Use
  Company Number: US-MALLINCKRODT-T201901013

PATIENT
  Sex: Male
  Weight: 74 kg

DRUGS (1)
  1. HYDROCODONE/ACETAMINOPHEN [Suspect]
     Active Substance: ACETAMINOPHEN\HYDROCODONE
     Indication: PAIN
     Dosage: 1.5 A DAY, OR AS MANY AS 3
     Route: 048

REACTIONS (6)
  - Fatigue [Unknown]
  - Intentional product misuse [Unknown]
  - Product quality issue [Unknown]
  - Major depression [Unknown]
  - Headache [Unknown]
  - Drug effect incomplete [Unknown]
